FAERS Safety Report 8758637 (Version 1)
Quarter: 2012Q4

REPORT INFORMATION
  Report Type: 
  Country: IT (occurrence: IT)
  Receive Date: 20120829
  Receipt Date: 20120829
  Transmission Date: 20130627
  Serious: Yes (Other)
  Sender: FDA-Public Use
  Company Number: IT-BAYER-2012-086580

PATIENT
  Age: 78 Year
  Sex: Male

DRUGS (2)
  1. NEXAVAR [Suspect]
     Indication: HEPATIC NEOPLASM
     Dosage: Daily dose 400 mg
     Route: 048
     Dates: start: 20120327, end: 20120531
  2. NEXAVAR [Suspect]
     Indication: HEPATIC NEOPLASM
     Dosage: UNK
     Route: 048

REACTIONS (1)
  - Hydrothorax [Recovered/Resolved]
